FAERS Safety Report 15188341 (Version 1)
Quarter: 2018Q3

REPORT INFORMATION
  Report Type: Report from Study
  Country: ES (occurrence: ES)
  Receive Date: 20180724
  Receipt Date: 20180724
  Transmission Date: 20181010
  Serious: Yes (Death, Hospitalization)
  Sender: FDA-Public Use
  Company Number: ES-TEVA-2018-ES-875624

PATIENT
  Age: 85 Year
  Sex: Female

DRUGS (9)
  1. PARACETAMOL (12A) [Suspect]
     Active Substance: ACETAMINOPHEN
     Dosage: 3 GRAM DAILY;
     Route: 065
     Dates: start: 20170312, end: 20170314
  2. PREGABALINA (3897A) [Concomitant]
     Active Substance: PREGABALIN
     Dosage: 150 MILLIGRAM DAILY;
     Dates: start: 20170312, end: 20170313
  3. OLANZAPINA (2770A) [Suspect]
     Active Substance: OLANZAPINE
     Dosage: 2,5 MG SI PRECISA
     Route: 065
     Dates: start: 20170312, end: 20170314
  4. RISPERIDONA (7201A) [Concomitant]
     Active Substance: RISPERIDONE
     Dosage: 0,5 MG SI PRECISA
     Dates: start: 20170312, end: 20170313
  5. QUETIAPINA (1136A) [Concomitant]
     Active Substance: QUETIAPINE
     Dosage: 100 MILLIGRAM DAILY;
     Dates: start: 20170312, end: 20170313
  6. PIPERACILINA/TAZOBACTAM [Suspect]
     Active Substance: PIPERACILLIN SODIUM\TAZOBACTAM SODIUM
     Dosage: 16 GRAM DAILY;
     Route: 065
     Dates: start: 20170312, end: 20170314
  7. FENTANILO (1543A) [Concomitant]
     Active Substance: FENTANYL
     Dosage: 1 UNIT
     Route: 062
     Dates: start: 20170312, end: 20170316
  8. OMEPRAZOL (2141A) [Suspect]
     Active Substance: OMEPRAZOLE
     Dosage: 20 MILLIGRAM DAILY;
     Route: 065
     Dates: start: 20170313, end: 20170314
  9. BEMIPARINA (2817A) [Concomitant]
     Active Substance: BEMIPARIN SODIUM
     Dosage: 7500 IU (INTERNATIONAL UNIT) DAILY;
     Dates: start: 20170312, end: 20170313

REACTIONS (1)
  - Hepatic failure [Fatal]

NARRATIVE: CASE EVENT DATE: 20170313
